FAERS Safety Report 16075154 (Version 1)
Quarter: 2019Q1

REPORT INFORMATION
  Report Type: Report from Study
  Country: US (occurrence: US)
  Receive Date: 20190315
  Receipt Date: 20190315
  Transmission Date: 20190418
  Serious: Yes (Other)
  Sender: FDA-Public Use
  Company Number: US-TEVA-2019-US-1023044

PATIENT
  Age: 57 Year
  Sex: Female

DRUGS (21)
  1. RITUXIMAB. [Concomitant]
     Active Substance: RITUXIMAB
     Indication: IMMUNOSUPPRESSANT DRUG THERAPY
  2. PREDNISONE. [Suspect]
     Active Substance: PREDNISONE
     Indication: DERMATOMYOSITIS
     Route: 048
  3. METHOTREXATE. [Concomitant]
     Active Substance: METHOTREXATE
     Indication: IMMUNOSUPPRESSANT DRUG THERAPY
  4. ACITRETIN. [Concomitant]
     Active Substance: ACITRETIN
     Indication: IMMUNOSUPPRESSANT DRUG THERAPY
  5. TACROLIMUS. [Concomitant]
     Active Substance: TACROLIMUS
     Indication: DERMATOMYOSITIS
     Route: 065
  6. CHLORAMBUCIL [Concomitant]
     Active Substance: CHLORAMBUCIL
     Indication: DERMATOMYOSITIS
     Route: 065
  7. APREMILAST [Suspect]
     Active Substance: APREMILAST
     Indication: DERMATOMYOSITIS
     Dosage: 60 MILLIGRAM DAILY;
     Route: 048
  8. INFLIXIMAB [Concomitant]
     Active Substance: INFLIXIMAB
     Indication: IMMUNOSUPPRESSANT DRUG THERAPY
  9. HYDROXYCHLOROQUINE [Suspect]
     Active Substance: HYDROXYCHLOROQUINE
     Indication: DERMATOMYOSITIS
     Route: 065
  10. AZATHIOPRINE. [Concomitant]
     Active Substance: AZATHIOPRINE
     Indication: DERMATOMYOSITIS
     Route: 065
  11. IMMUNE-GLOBULIN [Concomitant]
     Indication: DERMATOMYOSITIS
     Route: 042
  12. MYCOPHENOLATE -MOFETIL [Concomitant]
     Indication: DERMATOMYOSITIS
     Route: 065
  13. METHOTREXATE. [Concomitant]
     Active Substance: METHOTREXATE
     Indication: DERMATOMYOSITIS
     Route: 065
  14. IMMUNE-GLOBULIN [Concomitant]
     Indication: IMMUNOSUPPRESSANT DRUG THERAPY
  15. TACROLIMUS. [Concomitant]
     Active Substance: TACROLIMUS
     Indication: IMMUNOSUPPRESSANT DRUG THERAPY
  16. INFLIXIMAB [Concomitant]
     Active Substance: INFLIXIMAB
     Indication: DERMATOMYOSITIS
     Route: 065
  17. MYCOPHENOLATE -MOFETIL [Concomitant]
     Indication: IMMUNOSUPPRESSANT DRUG THERAPY
  18. RITUXIMAB. [Concomitant]
     Active Substance: RITUXIMAB
     Indication: DERMATOMYOSITIS
     Route: 065
  19. AZATHIOPRINE. [Concomitant]
     Active Substance: AZATHIOPRINE
     Indication: IMMUNOSUPPRESSANT DRUG THERAPY
  20. ACITRETIN. [Concomitant]
     Active Substance: ACITRETIN
     Indication: DERMATOMYOSITIS
     Route: 065
  21. CHLORAMBUCIL [Concomitant]
     Active Substance: CHLORAMBUCIL
     Indication: IMMUNOSUPPRESSANT DRUG THERAPY

REACTIONS (5)
  - Diarrhoea [Recovered/Resolved]
  - Off label use [Unknown]
  - Nausea [Recovered/Resolved]
  - Pruritus [Unknown]
  - Type 1 diabetes mellitus [Recovering/Resolving]
